FAERS Safety Report 6649118-3 (Version None)
Quarter: 2010Q1

REPORT INFORMATION
  Report Type: 
  Country: None (occurrence: None)
  Receive Date: 20100324
  Receipt Date: 20100312
  Transmission Date: 20100710
  Serious: No
  Sender: FDA-Public Use
  Company Number: US-JNJFOC-20100304585

PATIENT
  Sex: Male
  Weight: 79.38 kg

DRUGS (4)
  1. FENTANYL-100 [Suspect]
     Indication: SPINAL CORD INJURY
     Route: 062
  2. FENTANYL-100 [Suspect]
     Route: 062
  3. FENTANYL-100 [Suspect]
     Route: 062
  4. MORPHINE [Concomitant]
     Indication: BREAKTHROUGH PAIN
     Dosage: EVERY 3 HOURS AS NEEDED
     Route: 048

REACTIONS (6)
  - COLD SWEAT [None]
  - DRUG ADMINISTRATION ERROR [None]
  - DRUG PRESCRIBING ERROR [None]
  - INADEQUATE ANALGESIA [None]
  - WITHDRAWAL SYNDROME [None]
  - WRONG TECHNIQUE IN DRUG USAGE PROCESS [None]
